FAERS Safety Report 6647680-8 (Version None)
Quarter: 2010Q1

REPORT INFORMATION
  Report Type: 
  Country: None (occurrence: None)
  Receive Date: 20100323
  Receipt Date: 20100323
  Transmission Date: 20100710
  Serious: No
  Sender: FDA-Public Use
  Company Number: None

PATIENT
  Sex: Male
  Weight: 98.4306 kg

DRUGS (1)
  1. FLOMAX [Suspect]
     Indication: URINARY INCONTINENCE
     Dosage: 0.4 MG CAP 1 PILL A DAY
     Dates: start: 20100217, end: 20100220

REACTIONS (7)
  - ASTHENIA [None]
  - FATIGUE [None]
  - FEELING ABNORMAL [None]
  - HYPERSOMNIA [None]
  - HYPOPHAGIA [None]
  - URTICARIA [None]
  - WEIGHT DECREASED [None]
